FAERS Safety Report 8273404-7 (Version None)
Quarter: 2012Q1

REPORT INFORMATION
  Report Type: 
  Country: None (occurrence: None)
  Receive Date: 20120320
  Receipt Date: 20120312
  Transmission Date: 20120608
  Serious: Yes (Hospitalization, Other)
  Sender: FDA-Public Use
  Company Number: PHHY2012DO022284

PATIENT
  Age: 57 Year
  Sex: Female

DRUGS (2)
  1. LOSARTAN POTASSIUM [Concomitant]
     Dosage: 100 MG/DAY
     Route: 048
  2. AMLODIPINE [Suspect]
     Indication: HYPERTENSION
     Dosage: 10 MG/DAY
     Route: 048

REACTIONS (3)
  - DIPLEGIA [None]
  - INTERVERTEBRAL DISC PROTRUSION [None]
  - INJURY [None]
